FAERS Safety Report 9209770 (Version 1)
Quarter: 2013Q1

REPORT INFORMATION
  Report Type: Spontaneous
  Country: US (occurrence: None)
  Receive Date: 20120820
  Receipt Date: 20120820
  Transmission Date: 20140127
  Serious: No
  Sender: FDA-Public Use
  Company Number: 1000030177

PATIENT
  Age: 43 Year
  Sex: Male

DRUGS (5)
  1. VIIBRYD [Suspect]
     Indication: STRESS
     Dates: start: 20120425, end: 20120428
  2. PRAVASTATIN(PRAVASTATIN)(PRAVASTATIN) [Concomitant]
  3. ALLOPURINOL(ALLOPURINOL)(ALLOPURINOL) [Concomitant]
  4. AMBIEN (ZOLPIDEM TARTATE)(ZOLPIDEM TARTRATE) [Concomitant]
  5. GEMFIBROZIL(GEMFIBROZIL)(GEMFIBROZIL) [Concomitant]

REACTIONS (3)
  - Medication error [None]
  - Anxiety [None]
  - Off label use [None]
